FAERS Safety Report 5501079-6 (Version None)
Quarter: 2007Q4

REPORT INFORMATION
  Report Type: 
  Country: None (occurrence: None)
  Receive Date: 20071026
  Receipt Date: 20071015
  Transmission Date: 20080405
  Serious: Yes (Death, Hospitalization)
  Sender: FDA-Public Use
  Company Number: 2007BI016146

PATIENT
  Age: 65 Year
  Sex: Male
  Weight: 42.1845 kg

DRUGS (2)
  1. AVONEX [Suspect]
     Indication: MULTIPLE SCLEROSIS
     Dosage: IM
     Route: 030
  2. AVONEX [Suspect]
     Indication: MULTIPLE SCLEROSIS
     Dosage: 30 UG;QW;IM
     Route: 030
     Dates: start: 20050101, end: 20070801

REACTIONS (3)
  - ARTERIAL OCCLUSIVE DISEASE [None]
  - HAEMORRHAGIC STROKE [None]
  - MULTIPLE SCLEROSIS RELAPSE [None]
